FAERS Safety Report 20623223 (Version 1)
Quarter: 2022Q1

REPORT INFORMATION
  Report Type: Spontaneous
  Country: US (occurrence: None)
  Receive Date: 20220322
  Receipt Date: 20220322
  Transmission Date: 20220424
  Serious: Yes (Other)
  Sender: FDA-Public Use
  Company Number: None

PATIENT
  Sex: Female

DRUGS (1)
  1. ENBREL [Suspect]
     Active Substance: ETANERCEPT
     Indication: Rheumatoid arthritis
     Dosage: INJECT 1 PEN (50 MG TOTAL) SUBCUTANEOUSLY ONCE A WEEK
     Route: 058
     Dates: start: 20201215

REACTIONS (2)
  - Pregnancy [None]
  - Maternal exposure during pregnancy [None]
